FAERS Safety Report 12465787 (Version 1)
Quarter: 2016Q2

REPORT INFORMATION
  Report Type: Spontaneous
  Country: US (occurrence: US)
  Receive Date: 20160614
  Receipt Date: 20160614
  Transmission Date: 20160815
  Serious: Yes (Death, Hospitalization, Disabling, Other)
  Sender: FDA-Public Use
  Company Number: US-TEVA-226644USA

PATIENT
  Sex: Male

DRUGS (2)
  1. REGLAN [Suspect]
     Active Substance: METOCLOPRAMIDE HYDROCHLORIDE
     Dosage: 30-40 MG PER DAY
     Route: 065
  2. METOCLOPRAMIDE. [Suspect]
     Active Substance: METOCLOPRAMIDE
     Indication: IMPAIRED GASTRIC EMPTYING
     Dosage: 30-40 MG PER DAY
     Route: 065

REACTIONS (13)
  - Extrapyramidal disorder [Unknown]
  - Deformity [Unknown]
  - Tremor [Unknown]
  - Tardive dyskinesia [Unknown]
  - Nervous system disorder [Unknown]
  - Mental disorder [Unknown]
  - Dyskinesia [Unknown]
  - Speech disorder [Unknown]
  - Death [Fatal]
  - Dysphonia [Unknown]
  - Mastication disorder [Unknown]
  - Dysphagia [Unknown]
  - Dyskinesia [Unknown]

NARRATIVE: CASE EVENT DATE: 200905
